FAERS Safety Report 6243530-2 (Version None)
Quarter: 2009Q2

REPORT INFORMATION
  Report Type: 
  Country: None (occurrence: None)
  Receive Date: 20090624
  Receipt Date: 20090617
  Transmission Date: 20091009
  Serious: Yes (Life-Threatening, Hospitalization)
  Sender: FDA-Public Use
  Company Number: PHHY2009FR24579

PATIENT
  Age: 60 Year
  Sex: Female

DRUGS (5)
  1. EXELON [Suspect]
     Dosage: UNK
     Route: 062
     Dates: start: 20080901, end: 20081222
  2. MODOPAR [Concomitant]
  3. HEPT-A-MYL [Concomitant]
  4. ESOMEPRAZOLE MAGNESIUM [Concomitant]
  5. LEXOMIL [Concomitant]

REACTIONS (15)
  - AKINESIA [None]
  - CONCOMITANT DISEASE AGGRAVATED [None]
  - CONFUSIONAL STATE [None]
  - CYTOLYTIC HEPATITIS [None]
  - DEPRESSED LEVEL OF CONSCIOUSNESS [None]
  - DISORIENTATION [None]
  - GAIT DISTURBANCE [None]
  - GENERAL PHYSICAL HEALTH DETERIORATION [None]
  - HEPATIC ENCEPHALOPATHY [None]
  - HYPERTONIA [None]
  - LUNG DISORDER [None]
  - MYOCLONUS [None]
  - PYREXIA [None]
  - RHABDOMYOLYSIS [None]
  - TREMOR [None]
